FAERS Safety Report 6333121-7 (Version None)
Quarter: 2009Q3

REPORT INFORMATION
  Report Type: 
  Country: None (occurrence: None)
  Receive Date: 20090828
  Receipt Date: 20090817
  Transmission Date: 20100115
  Serious: Yes (Other)
  Sender: FDA-Public Use
  Company Number: DE-PFIZER INC-2009245803

PATIENT
  Age: 86 Year

DRUGS (2)
  1. TOVIAZ [Suspect]
     Indication: BLADDER DISORDER
     Dosage: 8 MG, DAILY
     Route: 048
     Dates: start: 20090518, end: 20090711
  2. TOVIAZ [Suspect]
     Dosage: 4 MG, 1X/DAY
     Route: 048
     Dates: start: 20090504, end: 20090517

REACTIONS (1)
  - BLOOD PRESSURE INCREASED [None]
